FAERS Safety Report 14643413 (Version 1)
Quarter: 2018Q1

REPORT INFORMATION
  Report Type: Spontaneous
  Country: US (occurrence: US)
  Receive Date: 20180315
  Receipt Date: 20180315
  Transmission Date: 20180509
  Serious: Yes (Other)
  Sender: FDA-Public Use
  Company Number: US-COOPERSURGICAL, INC.-US-2018CPS000006

PATIENT

DRUGS (1)
  1. PARAGARD T 380A [Suspect]
     Active Substance: COPPER
     Indication: CONTRACEPTION
     Dosage: UNK
     Route: 015
     Dates: start: 201010

REACTIONS (6)
  - Metrorrhagia [Unknown]
  - Metal poisoning [None]
  - Lyme disease [Unknown]
  - Metal poisoning [Unknown]
  - Muscle spasms [Unknown]
  - Weight increased [Unknown]

NARRATIVE: CASE EVENT DATE: 201605
